FAERS Safety Report 5822067-6 (Version None)
Quarter: 2008Q3

REPORT INFORMATION
  Report Type: 
  Country: None (occurrence: None)
  Receive Date: 20080725
  Receipt Date: 20080717
  Transmission Date: 20090109
  Serious: Yes (Hospitalization)
  Sender: FDA-Public Use
  Company Number: CH-RANBAXY-2008RR-16470

PATIENT

DRUGS (9)
  1. SIMVASTATIN 10MG TABLETS [Suspect]
     Dosage: 40 MG, QD
  2. CLARITHROMYCIN [Suspect]
     Indication: RHODOCOCCUS INFECTION
     Dosage: 250 MG, TID
  3. PREDNISOLONE RPG 20MG COMPRIME EFFERVESCENT SECABLE [Suspect]
     Indication: IMMUNOSUPPRESSION
     Dosage: 7.5 MG, QD
  4. CYCLOSPORINE [Suspect]
     Indication: IMMUNOSUPPRESSION
     Dosage: 50 MG, BID
  5. AZATHIOPRINE [Suspect]
     Indication: IMMUNOSUPPRESSION
  6. MYFORTIC [Suspect]
     Dosage: 540 MG, BID
  7. AMOXICILLIN AND CLAVULANATE POTASSIUM [Concomitant]
     Indication: PNEUMONIA
  8. VANCOMYCIN HCL [Concomitant]
  9. CIPROFLOXACIN [Concomitant]

REACTIONS (3)
  - DRUG INTERACTION [None]
  - MYOPATHY [None]
  - RHODOCOCCUS INFECTION [None]
